FAERS Safety Report 4992792-8 (Version None)
Quarter: 2006Q1

REPORT INFORMATION
  Report Type: 
  Country: None (occurrence: None)
  Receive Date: 20060313
  Receipt Date: 20060120
  Transmission Date: 20060701
  Serious: No
  Sender: FDA-Public Use
  Company Number: 2006-BP-00723BP

PATIENT
  Age: 68 Year
  Sex: Female

DRUGS (14)
  1. SPIRIVA [Suspect]
     Indication: CHRONIC OBSTRUCTIVE PULMONARY DISEASE
     Dosage: 18 MCG (18 MCG, 1 IN 1 D), IH
     Route: 055
     Dates: start: 20060106, end: 20060113
  2. ALDACTAZIDE (ALDACTAZIDE A) [Concomitant]
  3. ACCOLATE [Concomitant]
  4. ADVAIR (SERETIDE) [Concomitant]
  5. PROVENTIL [Concomitant]
  6. PEPCID [Concomitant]
  7. ASACOL [Concomitant]
  8. LIPITOR [Concomitant]
  9. RELAFEN [Concomitant]
  10. DURAGESIC-100 [Concomitant]
  11. LEXAPRO [Concomitant]
  12. PERCOCET [Concomitant]
  13. DARVOCET [Concomitant]
  14. XOLAIR [Concomitant]

REACTIONS (2)
  - BLINDNESS TRANSIENT [None]
  - COLOUR BLINDNESS [None]
